FAERS Safety Report 8141805-3 (Version None)
Quarter: 2012Q1

REPORT INFORMATION
  Report Type: 
  Country: None (occurrence: None)
  Receive Date: 20120216
  Receipt Date: 20120203
  Transmission Date: 20120608
  Serious: Yes (Hospitalization, Other)
  Sender: FDA-Public Use
  Company Number: US-ELI_LILLY_AND_COMPANY-US201112007206

PATIENT
  Sex: Female

DRUGS (14)
  1. ASPIRIN [Concomitant]
     Dosage: 81 MG, UNK
  2. ATENOLOL [Concomitant]
     Dosage: 25 MG, QD
  3. FORTEO [Suspect]
     Dosage: 20 UG, QD
     Route: 065
  4. FORTEO [Suspect]
     Dosage: 20 UG, QD
  5. FERROUS SULFATE TAB [Concomitant]
     Indication: ANAEMIA
  6. CALTRATE                           /00751519/ [Concomitant]
  7. FORTEO [Suspect]
     Indication: OSTEOPOROSIS
     Dosage: 20 UG, QD
     Route: 065
     Dates: start: 20110601
  8. FORTEO [Suspect]
     Dosage: 20 UG, QD
  9. MULTI-VITAMIN [Concomitant]
  10. FISH OIL [Concomitant]
  11. CALCIUM 600 PLUS VITAMIN D [Concomitant]
  12. FORTEO [Suspect]
     Dosage: 20 UG, QD
     Route: 065
  13. PRILOSEC [Concomitant]
     Dosage: UNK, QD
  14. IRON [Concomitant]

REACTIONS (1)
  - FEMUR FRACTURE [None]
